FAERS Safety Report 16021735 (Version 1)
Quarter: 2019Q1

REPORT INFORMATION
  Report Type: Spontaneous
  Country: JP (occurrence: JP)
  Receive Date: 20190301
  Receipt Date: 20190301
  Transmission Date: 20190418
  Serious: Yes (Life-Threatening, Hospitalization, Other)
  Sender: FDA-Public Use
  Company Number: JP-ACCORD-109567

PATIENT
  Age: 74 Year
  Sex: Female

DRUGS (5)
  1. FOLATE SODIUM/FOLIC ACID [Concomitant]
     Indication: RHEUMATOID ARTHRITIS
  2. CALCIUM PANTOTHENATE/NICOTINAMIDE/PYRIDOXINE HYDROCHLORIDE/RIBOFLAVIN/THIAMINE HYDROCHLORIDE [Concomitant]
     Indication: RHEUMATOID ARTHRITIS
  3. RISEDRONATE SODIUM/RISEDRONIC ACID [Concomitant]
     Indication: RHEUMATOID ARTHRITIS
  4. METHOTREXATE. [Suspect]
     Active Substance: METHOTREXATE
     Indication: RHEUMATOID ARTHRITIS
     Dosage: 14 MG/WEEK FOR 10 YEARS
  5. PENICILLAMINE [Concomitant]
     Active Substance: PENICILLAMINE
     Indication: RHEUMATOID ARTHRITIS

REACTIONS (1)
  - Epstein-Barr virus associated lymphoproliferative disorder [Recovered/Resolved]
